FAERS Safety Report 20549430 (Version 4)
Quarter: 2022Q3

REPORT INFORMATION
  Report Type: Report from Study
  Country: JP (occurrence: JP)
  Receive Date: 20220303
  Receipt Date: 20220823
  Transmission Date: 20221027
  Serious: Yes (Other)
  Sender: FDA-Public Use
  Company Number: JP-ORPHANEU-2019006246

PATIENT

DRUGS (7)
  1. CYSTADANE [Suspect]
     Active Substance: BETAINE
     Indication: Homocystinuria
     Dosage: 4 GRAM, BID
     Route: 048
     Dates: start: 20150612, end: 202001
  2. CYSTADANE [Suspect]
     Active Substance: BETAINE
     Indication: Cystathionine beta-synthase deficiency
     Dosage: 3.5 GRAM, BID
     Route: 048
     Dates: start: 20200110, end: 20210107
  3. CYSTADANE [Suspect]
     Active Substance: BETAINE
     Dosage: 3.25 GRAM, BID
     Route: 048
     Dates: start: 20210108
  4. VITAMEDIN                          /00176001/ [Concomitant]
     Indication: Prophylaxis
     Dosage: ONE CAPSULE DAILY
     Route: 048
  5. FOLIC ACID [Concomitant]
     Active Substance: FOLIC ACID
     Indication: Prophylaxis
     Dosage: 5 MILLIGRAM, QD
     Route: 048
  6. ASPIRIN [Concomitant]
     Active Substance: ASPIRIN
     Indication: Prophylaxis
     Dosage: 100 MILLIGRAM, QD
     Route: 048
  7. LOSARTAN [Concomitant]
     Active Substance: LOSARTAN
     Indication: Hypertension
     Dosage: 50 MG, QD
     Route: 048

REACTIONS (2)
  - Diabetes mellitus [Recovering/Resolving]
  - Diabetes mellitus inadequate control [Unknown]

NARRATIVE: CASE EVENT DATE: 20181005
